FAERS Safety Report 8458997-9 (Version None)
Quarter: 2012Q2

REPORT INFORMATION
  Report Type: 
  Country: None (occurrence: None)
  Receive Date: 20120615
  Receipt Date: 20120530
  Transmission Date: 20120825
  Serious: Yes (Death, Hospitalization, Other)
  Sender: FDA-Public Use
  Company Number: EU-2012-10156

PATIENT
  Age: 64 Year
  Sex: Female

DRUGS (10)
  1. SPIRON (SPIRONOLACTONE) TABLET [Concomitant]
  2. CARBOPLATIN [Concomitant]
  3. SAMSCA [Suspect]
     Indication: HYPONATRAEMIA
     Dosage: 15 MG MILLIGRAM(S), QOD, ORAL
     Route: 048
     Dates: start: 20120427
  4. ETOPOSIDE [Concomitant]
  5. THIAMINE (THIAMINE) TABLET [Concomitant]
  6. ETOPOSIDE [Concomitant]
  7. NIZORAL (KETOCONAZOLE) TABLET [Concomitant]
  8. CARBOPLATIN [Concomitant]
  9. RADIATION THERAPY [Concomitant]
  10. POTASSIUM CHLORIDE [Concomitant]

REACTIONS (9)
  - PANCYTOPENIA [None]
  - RESPIRATORY DISORDER [None]
  - ILEUS [None]
  - ABDOMINAL PAIN [None]
  - PYREXIA [None]
  - ESCHERICHIA TEST POSITIVE [None]
  - INCORRECT DRUG ADMINISTRATION RATE [None]
  - GENERAL PHYSICAL HEALTH DETERIORATION [None]
  - CUSHING'S SYNDROME [None]
